FAERS Safety Report 19922641 (Version 2)
Quarter: 2021Q4

REPORT INFORMATION
  Report Type: Report from Study
  Country: US (occurrence: US)
  Receive Date: 20211005
  Receipt Date: 20211013
  Transmission Date: 20220303
  Serious: Yes (Other)
  Sender: FDA-Public Use
  Company Number: US-ALLERGAN-2133623US

PATIENT
  Sex: Male

DRUGS (1)
  1. BIMATOPROST [Suspect]
     Active Substance: BIMATOPROST
     Indication: Glaucoma
     Dosage: UNK

REACTIONS (1)
  - Blindness transient [Unknown]
